FAERS Safety Report 7434156-3 (Version None)
Quarter: 2011Q2

REPORT INFORMATION
  Report Type: 
  Country: None (occurrence: None)
  Receive Date: 20110425
  Receipt Date: 20110418
  Transmission Date: 20111010
  Serious: No
  Sender: FDA-Public Use
  Company Number: US-PFIZER INC-2011085512

PATIENT
  Sex: Female
  Weight: 56.236 kg

DRUGS (4)
  1. SYNTHROID [Concomitant]
     Indication: THYROID DISORDER
     Dosage: 88 MCG DAILY
     Route: 048
  2. GABAPENTIN [Suspect]
     Indication: HYPOAESTHESIA ORAL
     Dosage: 300 MG, 2X/DAY
     Route: 048
     Dates: start: 20101001
  3. GABAPENTIN [Suspect]
     Indication: NEUROPATHY PERIPHERAL
     Dosage: 1500 MG DAILY
     Route: 048
  4. GABAPENTIN [Suspect]
     Indication: TRIGEMINAL NEURALGIA

REACTIONS (1)
  - BURNING SENSATION [None]
